FAERS Safety Report 13323206 (Version 1)
Quarter: 2017Q1

REPORT INFORMATION
  Report Type: Report from Study
  Country: NL (occurrence: NL)
  Receive Date: 20170310
  Receipt Date: 20170310
  Transmission Date: 20170428
  Serious: Yes (Death, Other)
  Sender: FDA-Public Use
  Company Number: NL-LUNDBECK-DKLU2027554

PATIENT
  Age: 59 Year
  Sex: Male

DRUGS (2)
  1. NORTHERA [Suspect]
     Active Substance: DROXIDOPA
     Indication: ORTHOSTATIC HYPOTENSION
  2. NORTHERA [Suspect]
     Active Substance: DROXIDOPA
     Indication: MULTIPLE SYSTEM ATROPHY
     Route: 065
     Dates: end: 20170302

REACTIONS (4)
  - Drug withdrawal convulsions [Unknown]
  - Death [Fatal]
  - Epilepsy [Unknown]
  - Pneumonia [Unknown]

NARRATIVE: CASE EVENT DATE: 20170303
